FAERS Safety Report 6807036-1 (Version None)
Quarter: 2010Q2

REPORT INFORMATION
  Report Type: 
  Country: None (occurrence: None)
  Receive Date: 20100629
  Receipt Date: 20080623
  Transmission Date: 20101027
  Serious: No
  Sender: FDA-Public Use
  Company Number: US-PFIZER INC-2008052576

PATIENT
  Sex: Female

DRUGS (4)
  1. ALPRAZOLAM [Suspect]
  2. BENADRYL [Suspect]
     Indication: POSTNASAL DRIP
     Route: 048
  3. ESCITALOPRAM [Suspect]
  4. ALCOHOL [Suspect]

REACTIONS (1)
  - SOMNOLENCE [None]
